FAERS Safety Report 6096071-X (Version None)
Quarter: 2009Q1

REPORT INFORMATION
  Report Type: 
  Country: None (occurrence: None)
  Receive Date: 20090227
  Receipt Date: 20080826
  Transmission Date: 20090719
  Serious: No
  Sender: FDA-Public Use
  Company Number: A0744455A

PATIENT
  Age: 29 Year
  Sex: Male

DRUGS (4)
  1. LAMICTAL [Suspect]
     Indication: SCHIZOPHRENIA
     Dosage: 300MG PER DAY
     Route: 048
     Dates: start: 20080701
  2. WELLBUTRIN [Concomitant]
  3. ABILIFY [Concomitant]
  4. LITHIUM [Concomitant]

REACTIONS (2)
  - MOOD ALTERED [None]
  - SOCIAL AVOIDANT BEHAVIOUR [None]
